FAERS Safety Report 14160185 (Version 2)
Quarter: 2018Q2

REPORT INFORMATION
  Report Type: Spontaneous
  Country: FR (occurrence: FR)
  Receive Date: 20171106
  Receipt Date: 20180503
  Transmission Date: 20180711
  Serious: Yes (Other)
  Sender: FDA-Public Use
  Company Number: FR-MERCK KGAA-2033264

PATIENT
  Age: 52 Year
  Sex: Female
  Weight: 72 kg

DRUGS (2)
  1. LEVOTHYROX 100 NF [Suspect]
     Active Substance: LEVOTHYROXINE SODIUM
     Dates: start: 201707
  2. NOVOTHYROX [Suspect]
     Active Substance: LEVOTHYROXINE SODIUM
     Indication: THYROIDECTOMY
     Route: 048
     Dates: start: 20170718

REACTIONS (27)
  - Palpitations [Unknown]
  - Muscle spasms [Unknown]
  - Psychiatric symptom [Unknown]
  - Self esteem decreased [Unknown]
  - Dysstasia [Unknown]
  - Myalgia [Unknown]
  - Pain in extremity [Unknown]
  - Affect lability [Unknown]
  - Night sweats [Unknown]
  - Arthralgia [Unknown]
  - Social avoidant behaviour [Unknown]
  - Disturbance in attention [Unknown]
  - Sleep disorder [Unknown]
  - Insomnia [Unknown]
  - Fatigue [Unknown]
  - Loss of personal independence in daily activities [Unknown]
  - Apathy [Unknown]
  - Decreased activity [Unknown]
  - Asthenia [Unknown]
  - Asocial behaviour [Unknown]
  - Fear of disease [Unknown]
  - Grip strength decreased [Unknown]
  - Blood thyroid stimulating hormone decreased [Unknown]
  - Decreased interest [Unknown]
  - Hypokinesia [Unknown]
  - Gait disturbance [Unknown]
  - Family stress [Unknown]

NARRATIVE: CASE EVENT DATE: 20170820
